FAERS Safety Report 6295857-6 (Version None)
Quarter: 2009Q3

REPORT INFORMATION
  Report Type: 
  Country: None (occurrence: None)
  Receive Date: 20090731
  Receipt Date: 20090721
  Transmission Date: 20100115
  Serious: Yes (Hospitalization)
  Sender: FDA-Public Use
  Company Number: 8047865

PATIENT
  Age: 31 Year
  Sex: Female
  Weight: 81.8 kg

DRUGS (3)
  1. CIMZIA [Suspect]
     Indication: CROHN'S DISEASE
     Dosage: 400 MG SC
     Route: 058
     Dates: start: 20090615
  2. AMBIEN [Concomitant]
  3. BUPROPION [Concomitant]

REACTIONS (7)
  - COLITIS [None]
  - HAEMATOCHEZIA [None]
  - PAIN [None]
  - PRURITUS [None]
  - SWELLING [None]
  - URTICARIA [None]
  - WHITE BLOOD CELL COUNT INCREASED [None]
